FAERS Safety Report 5610708-8 (Version None)
Quarter: 2008Q1

REPORT INFORMATION
  Report Type: 
  Country: None (occurrence: None)
  Receive Date: 20080130
  Receipt Date: 20080130
  Transmission Date: 20080703
  Serious: Yes (Disabling)
  Sender: FDA-Public Use
  Company Number: None

PATIENT
  Sex: Male
  Weight: 74.8435 kg

DRUGS (22)
  1. LAMICTAL [Suspect]
     Indication: BIPOLAR I DISORDER
     Dosage: 25MG  QDAY  PO
     Route: 048
     Dates: start: 20070915, end: 20071203
  2. VASOTEC [Concomitant]
  3. NEXIUM [Concomitant]
  4. CLARITIN [Concomitant]
  5. COMBIVENT [Concomitant]
  6. FLOVENT [Concomitant]
  7. COLACE [Concomitant]
  8. SENNA [Concomitant]
  9. RISPERDAL [Concomitant]
  10. HALOPERIDOLM [Concomitant]
  11. TYLENOL EXTRA STRENGTH [Concomitant]
  12. FLUOCINONIDE [Concomitant]
  13. DUONEB [Concomitant]
  14. VITAMIN CAP [Concomitant]
  15. KLONOPIN [Concomitant]
  16. LEXAPRO [Concomitant]
  17. PATADAY [Concomitant]
  18. GLIPIZIDE [Concomitant]
  19. BENZTROPINE MESEYLATE [Concomitant]
  20. NICOTROL [Concomitant]
  21. SEROQUEL [Concomitant]
  22. INSULIN INSULATARD NPH NORDISK [Concomitant]

REACTIONS (1)
  - AMMONIA INCREASED [None]
